FAERS Safety Report 15356957 (Version 2)
Quarter: 2018Q3

REPORT INFORMATION
  Report Type: Spontaneous
  Country: JP (occurrence: JP)
  Receive Date: 20180906
  Receipt Date: 20180925
  Transmission Date: 20181010
  Serious: Yes (Other)
  Sender: FDA-Public Use
  Company Number: JP-GLAXOSMITHKLINE-JP2018JPN157672

PATIENT
  Age: 73 Year
  Sex: Female

DRUGS (4)
  1. FAMOTIDINE. [Concomitant]
     Active Substance: FAMOTIDINE
     Indication: VARICES OESOPHAGEAL
     Dosage: 20 MG, BID
  2. POTASSIUM GLUCONATE FINE GRANULE [Concomitant]
     Dosage: 20 MG, BID
  3. HEPSERA [Suspect]
     Active Substance: ADEFOVIR DIPIVOXIL
     Indication: HEPATITIS B
     Dosage: 10 MG, QD
     Route: 048
  4. ZEFIX [Suspect]
     Active Substance: LAMIVUDINE
     Indication: HEPATITIS B
     Dosage: 100 MG, QD
     Route: 048

REACTIONS (4)
  - Hypophosphataemia [Unknown]
  - Fanconi syndrome acquired [Unknown]
  - Hypoaesthesia [Unknown]
  - Pain in extremity [Unknown]
